FAERS Safety Report 7265596-3 (Version None)
Quarter: 2011Q1

REPORT INFORMATION
  Report Type: 
  Country: None (occurrence: None)
  Receive Date: 20110131
  Receipt Date: 20101019
  Transmission Date: 20110831
  Serious: Yes (Hospitalization)
  Sender: FDA-Public Use
  Company Number: US-BAYER-201035069NA

PATIENT
  Sex: Female
  Weight: 61 kg

DRUGS (4)
  1. OCELLA [Suspect]
     Indication: ORAL CONTRACEPTION
     Dosage: UNK
     Dates: start: 20080710, end: 20090906
  2. YASMIN [Suspect]
     Indication: ACNE
  3. YASMIN [Suspect]
     Indication: ORAL CONTRACEPTION
     Dosage: UNK
     Dates: start: 20071116, end: 20080712
  4. OCELLA [Suspect]
     Indication: ACNE

REACTIONS (3)
  - ABDOMINAL PAIN [None]
  - UMBILICAL HERNIA [None]
  - CHOLELITHIASIS [None]
